FAERS Safety Report 25426913 (Version 1)
Quarter: 2025Q2

REPORT INFORMATION
  Report Type: Spontaneous
  Country: KZ (occurrence: KZ)
  Receive Date: 20250612
  Receipt Date: 20250612
  Transmission Date: 20250717
  Serious: Yes (Hospitalization)
  Sender: TAKEDA
  Company Number: KZ-TAKEDA-2025TUS053951

PATIENT
  Age: 34 Year
  Sex: Female

DRUGS (1)
  1. ENTYVIO [Suspect]
     Active Substance: VEDOLIZUMAB
     Indication: Crohn^s disease

REACTIONS (3)
  - Arthropathy [Recovered/Resolved]
  - Inflammation [Recovered/Resolved]
  - Cytomegalovirus infection [Recovered/Resolved]
